FAERS Safety Report 10645580 (Version 1)
Quarter: 2014Q4

REPORT INFORMATION
  Report Type: Spontaneous
  Country: US (occurrence: None)
  Receive Date: 20141210
  Receipt Date: 20141210
  Transmission Date: 20150529
  Serious: No
  Sender: FDA-Public Use
  Company Number: None

PATIENT
  Age: 32 Year
  Sex: Female
  Weight: 77.11 kg

DRUGS (1)
  1. BUPROPION HCL SR [Suspect]
     Active Substance: BUPROPION HYDROCHLORIDE
     Indication: DEPRESSION
     Route: 048

REACTIONS (8)
  - No therapeutic response [None]
  - Product substitution issue [None]
  - Feeling abnormal [None]
  - Product quality issue [None]
  - Aggression [None]
  - Fatigue [None]
  - Depression [None]
  - Product physical issue [None]
